FAERS Safety Report 9508317 (Version 2)
Quarter: 2013Q3

REPORT INFORMATION
  Report Type: Spontaneous
  Country: US (occurrence: US)
  Receive Date: 20130909
  Receipt Date: 20130917
  Transmission Date: 20140515
  Serious: Yes (Hospitalization, Other)
  Sender: FDA-Public Use
  Company Number: US-ELI_LILLY_AND_COMPANY-US201308009548

PATIENT
  Sex: Male

DRUGS (10)
  1. HUMULIN NPH [Suspect]
     Indication: TYPE 2 DIABETES MELLITUS
     Dosage: 60 U, QD
     Dates: start: 2003, end: 20130818
  2. HUMULIN NPH [Suspect]
     Dosage: 40 U, QD
     Dates: start: 2003, end: 20130818
  3. INSULIN HUMAN [Suspect]
     Indication: TYPE 2 DIABETES MELLITUS
     Dosage: 30 U, QD
     Dates: start: 2003, end: 20130818
  4. INSULIN HUMAN [Suspect]
     Dosage: 50 U, QD
     Dates: start: 2003, end: 20130818
  5. INSULIN HUMAN [Suspect]
     Dosage: 40 U, QD
  6. HUMALOG LISPRO [Suspect]
     Indication: TYPE 2 DIABETES MELLITUS
     Dosage: UNK UNK, PRN
     Dates: start: 20130818
  7. ASPIRIN [Concomitant]
     Dosage: 81 MG, QD
  8. LODINE [Concomitant]
     Dosage: 300 MG, BID
  9. NORCO [Concomitant]
     Indication: PAIN
     Dosage: UNK, PRN
  10. SIMVASTATIN [Concomitant]
     Dosage: 40 MG, QD

REACTIONS (6)
  - Localised infection [Unknown]
  - Skin discolouration [Unknown]
  - Neoplasm malignant [Unknown]
  - Neuropathy peripheral [Unknown]
  - Incorrect product storage [Unknown]
  - Attention deficit/hyperactivity disorder [Unknown]
